FAERS Safety Report 5340050-4 (Version None)
Quarter: 2007Q2

REPORT INFORMATION
  Report Type: 
  Country: None (occurrence: None)
  Receive Date: 20070531
  Receipt Date: 20070524
  Transmission Date: 20071010
  Serious: Yes (Life-Threatening)
  Sender: FDA-Public Use
  Company Number: GB-ASTRAZENECA-2007GB01097

PATIENT
  Age: 36 Year
  Sex: Male

DRUGS (1)
  1. LIDOCAINE [Suspect]
     Indication: MOLE EXCISION
     Route: 057
     Dates: start: 20070314, end: 20070314

REACTIONS (7)
  - BRADYCARDIA [None]
  - COLD SWEAT [None]
  - FEELING COLD [None]
  - HYPERHIDROSIS [None]
  - HYPOKINESIA [None]
  - PALLOR [None]
  - SYNCOPE [None]
